FAERS Safety Report 15266466 (Version 1)
Quarter: 2018Q3

REPORT INFORMATION
  Report Type: Spontaneous
  Country: US (occurrence: US)
  Receive Date: 20180810
  Receipt Date: 20180810
  Transmission Date: 20181010
  Serious: No
  Sender: FDA-Public Use
  Company Number: US-BEH-2018093636

PATIENT
  Age: 22 Year
  Sex: Female
  Weight: 77.98 kg

DRUGS (9)
  1. ZEMAIRA [Suspect]
     Active Substance: .ALPHA.1-PROTEINASE INHIBITOR HUMAN
     Indication: PANNICULITIS
  2. HEPARIN [Concomitant]
     Active Substance: HEPARIN SODIUM
  3. SODIUM CHLORIDE. [Concomitant]
     Active Substance: SODIUM CHLORIDE
  4. LMX                                /00033401/ [Concomitant]
  5. MULTIVITAMINS [Concomitant]
     Active Substance: VITAMINS
  6. DIPHENHYDRAMINE. [Concomitant]
     Active Substance: DIPHENHYDRAMINE
  7. VITAMIN D                          /00107901/ [Concomitant]
     Active Substance: ERGOCALCIFEROL
  8. EPINEPHRINE. [Concomitant]
     Active Substance: EPINEPHRINE
  9. ZEMAIRA [Suspect]
     Active Substance: .ALPHA.1-PROTEINASE INHIBITOR HUMAN
     Indication: ALPHA-1 ANTI-TRYPSIN DEFICIENCY
     Dosage: 90 MG/KG, QW
     Route: 042
     Dates: start: 20170517

REACTIONS (3)
  - Fatigue [Unknown]
  - Migraine [Unknown]
  - Nausea [Unknown]

NARRATIVE: CASE EVENT DATE: 20180806
